FAERS Safety Report 9422427 (Version 7)
Quarter: 2014Q4

REPORT INFORMATION
  Report Type: Spontaneous
  Country: US (occurrence: US)
  Receive Date: 20130726
  Receipt Date: 20141014
  Transmission Date: 20150529
  Serious: Yes (Hospitalization, Disabling, Other)
  Sender: FDA-Public Use
  Company Number: US-MERCK-1307USA013474

PATIENT
  Sex: Male
  Weight: 101.13 kg

DRUGS (4)
  1. PREDNISONE. [Concomitant]
     Active Substance: PREDNISONE
     Indication: RHEUMATOID ARTHRITIS
     Dosage: 1MG TID; 7.5 MG-10 MG QD
     Dates: start: 2001
  2. ALENDRONATE SODIUM. [Suspect]
     Active Substance: ALENDRONATE SODIUM
     Indication: OSTEOPENIA
     Dosage: 70 MG, UNK
     Route: 048
     Dates: start: 20080321, end: 20110709
  3. FOSAMAX [Suspect]
     Active Substance: ALENDRONATE SODIUM
     Indication: OSTEOPENIA
     Dosage: 70 MG, QW
     Route: 048
     Dates: start: 20050118, end: 20080902
  4. ALENDRONATE SODIUM. [Suspect]
     Active Substance: ALENDRONATE SODIUM
     Dosage: 35 MG, QW
     Route: 048

REACTIONS (69)
  - Low turnover osteopathy [Not Recovered/Not Resolved]
  - Joint irrigation [Unknown]
  - Debridement [Unknown]
  - Chronic obstructive pulmonary disease [Not Recovered/Not Resolved]
  - Interstitial lung disease [Unknown]
  - Adenotonsillectomy [Unknown]
  - Stress fracture [Not Recovered/Not Resolved]
  - Postoperative wound infection [Unknown]
  - Fracture delayed union [Unknown]
  - Medical device removal [Unknown]
  - Pneumonia [Recovered/Resolved]
  - Debridement [Unknown]
  - Drug implantation [Unknown]
  - Acarodermatitis [Recovered/Resolved]
  - Hyperlipidaemia [Unknown]
  - Swelling [Unknown]
  - Oropharyngeal pain [Unknown]
  - Headache [Unknown]
  - Wound closure [Unknown]
  - Lumbar vertebral fracture [Unknown]
  - Productive cough [Unknown]
  - Muscle spasms [Unknown]
  - Dizziness [Unknown]
  - Device failure [Unknown]
  - Shoulder arthroplasty [Unknown]
  - Incisional drainage [Unknown]
  - Asthma [Unknown]
  - Chronic obstructive pulmonary disease [Not Recovered/Not Resolved]
  - Gastrooesophageal reflux disease [Unknown]
  - Hyponatraemia [Unknown]
  - Wound infection staphylococcal [Unknown]
  - Shoulder arthroplasty [Unknown]
  - Depression [Not Recovered/Not Resolved]
  - Bursitis [Unknown]
  - Essential hypertension [Unknown]
  - Coronary artery disease [Unknown]
  - Fatigue [Unknown]
  - Malaise [Unknown]
  - Pain in extremity [Unknown]
  - Vomiting [Unknown]
  - Urticaria [Recovered/Resolved]
  - Internal fixation of fracture [Unknown]
  - Joint irrigation [Unknown]
  - Drug implantation [Unknown]
  - Arthroscopic surgery [Unknown]
  - Hyperlipidaemia [Unknown]
  - Osteoporosis [Not Recovered/Not Resolved]
  - Debridement [Unknown]
  - Osteomyelitis [Unknown]
  - Medical device removal [Unknown]
  - Wound treatment [Unknown]
  - Foot fracture [Unknown]
  - Staphylococcal infection [Unknown]
  - Rhinorrhoea [Unknown]
  - Sleep apnoea syndrome [Unknown]
  - Peripheral swelling [Unknown]
  - Haemoglobin decreased [Unknown]
  - Femur fracture [Recovered/Resolved]
  - Femur fracture [Not Recovered/Not Resolved]
  - Open reduction of fracture [Unknown]
  - Medical device removal [Unknown]
  - Staphylococcal infection [Unknown]
  - Rheumatoid lung [Unknown]
  - Wound dehiscence [Unknown]
  - Anxiety [Not Recovered/Not Resolved]
  - Vitamin D deficiency [Unknown]
  - Haematocrit decreased [Unknown]
  - Drug ineffective [Unknown]
  - Anaemia [Unknown]

NARRATIVE: CASE EVENT DATE: 200512
